FAERS Safety Report 18310494 (Version 2)
Quarter: 2020Q4

REPORT INFORMATION
  Report Type: Spontaneous
  Country: FR (occurrence: FR)
  Receive Date: 20200925
  Receipt Date: 20201009
  Transmission Date: 20210113
  Serious: Yes (Hospitalization, Other)
  Sender: FDA-Public Use
  Company Number: NVSC2020FR258868

PATIENT
  Age: 77 Year
  Sex: Female

DRUGS (6)
  1. TAREG [Suspect]
     Active Substance: VALSARTAN
     Dosage: 160 MG, UNKNOWN
     Route: 065
  2. TAREG [Suspect]
     Active Substance: VALSARTAN
     Indication: HYPERTENSION
     Dosage: 80 MG, QD
     Route: 065
     Dates: start: 1996
  3. CLARYTINE [Suspect]
     Active Substance: LORATADINE
     Indication: HYPERSENSITIVITY
     Dosage: UNK UNK, QD
     Route: 065
  4. TAREG [Suspect]
     Active Substance: VALSARTAN
     Dosage: 160 MG, UNKNOWN
     Route: 065
     Dates: start: 2002
  5. MOPRAL [Suspect]
     Active Substance: OMEPRAZOLE
     Indication: HIATUS HERNIA
     Dosage: 20 MG, QD
     Route: 065
  6. EFFERALGAN [Concomitant]
     Active Substance: ACETAMINOPHEN
     Indication: ARTHRALGIA
     Dosage: UNK UNK, QD
     Route: 065

REACTIONS (4)
  - Chest pain [Recovered/Resolved]
  - Blood pressure increased [Recovered/Resolved]
  - Product storage error [Unknown]
  - Dry eye [Unknown]

NARRATIVE: CASE EVENT DATE: 20200907
